FAERS Safety Report 14155688 (Version 2)
Quarter: 2020Q2

REPORT INFORMATION
  Report Type: Report from Study
  Country: None (occurrence: CA)
  Receive Date: 20171103
  Receipt Date: 20200423
  Transmission Date: 20200713
  Serious: Yes (Other)
  Sender: FDA-Public Use
  Company Number: CA-ABBVIE-17K-028-2147515-00

PATIENT
  Age: 82 Year
  Sex: Female

DRUGS (3)
  1. HUMIRA [Suspect]
     Active Substance: ADALIMUMAB
     Route: 058
     Dates: start: 201704
  2. HUMIRA [Suspect]
     Active Substance: ADALIMUMAB
     Indication: RHEUMATOID ARTHRITIS
     Route: 058
     Dates: start: 20070828, end: 2016
  3. METHOTREXATE. [Concomitant]
     Active Substance: METHOTREXATE
     Indication: RHEUMATOID ARTHRITIS
     Dates: end: 2017

REACTIONS (5)
  - Bladder neoplasm [Recovered/Resolved]
  - Hand deformity [Not Recovered/Not Resolved]
  - Blood count abnormal [Unknown]
  - Haemoglobin decreased [Not Recovered/Not Resolved]
  - Blood iron decreased [Unknown]

NARRATIVE: CASE EVENT DATE: 201701
